FAERS Safety Report 9587456 (Version 1)
Quarter: 2013Q4

REPORT INFORMATION
  Report Type: Spontaneous
  Country: US (occurrence: US)
  Receive Date: 20131003
  Receipt Date: 20131003
  Transmission Date: 20140711
  Serious: Yes (Other)
  Sender: FDA-Public Use
  Company Number: US-TEVA-435886USA

PATIENT
  Age: 41 Year
  Sex: Female
  Weight: 59.02 kg

DRUGS (5)
  1. PARAGARD 380A [Suspect]
     Indication: CONTRACEPTION
     Route: 015
  2. ALBUTEROL [Concomitant]
     Indication: ASTHMA
  3. BUPROPION [Concomitant]
     Indication: DEPRESSION
  4. EFFEXOR [Concomitant]
     Indication: DEPRESSION
  5. IBUPROFEN [Concomitant]

REACTIONS (4)
  - Haemorrhage [Unknown]
  - Embedded device [Recovered/Resolved]
  - Device breakage [Not Recovered/Not Resolved]
  - Muscle spasms [Unknown]
